FAERS Safety Report 10640511 (Version 1)
Quarter: 2014Q4

REPORT INFORMATION
  Report Type: Spontaneous
  Country: GB (occurrence: None)
  Receive Date: 20141205
  Receipt Date: 20141205
  Transmission Date: 20150529
  Serious: Yes (Hospitalization, Other)
  Sender: FDA-Public Use
  Company Number: 2014-002271

PATIENT
  Age: 49 Year
  Sex: Female

DRUGS (9)
  1. PARACETAMOL(PARACETAMOL) [Concomitant]
  2. MESALAZINE (MESALAZINE) [Suspect]
     Active Substance: MESALAMINE
     Indication: COLITIS
     Route: 048
     Dates: start: 20140702, end: 20140715
  3. CALCHICHEW D3( CALCIUM CARBONATE, COLECALCIFEROL) [Concomitant]
  4. GABAPENTIN(GABAPENTIN) [Concomitant]
  5. SIMVASTATIN(SIMVASTATIN) [Concomitant]
     Active Substance: SIMVASTATIN
  6. BUDESONIDE (BUDESONIDE) [Suspect]
     Active Substance: BUDESONIDE
     Indication: ENTEROCOLITIS HAEMORRHAGIC
     Route: 048
     Dates: start: 20140702, end: 20140715
  7. ASPIRIN(ACETYLSALICYLIC ACID) [Concomitant]
     Active Substance: ASPIRIN
  8. AMITRIPTYLINE(AMITRIPTYLINE) [Concomitant]
  9. LANSOPRAZOLE(LANSOPRAZOLE) [Concomitant]

REACTIONS (3)
  - Urticaria [None]
  - Thrombocytopenia [None]
  - Vasculitic rash [None]

NARRATIVE: CASE EVENT DATE: 20140712
